FAERS Safety Report 6895862-2 (Version None)
Quarter: 2010Q3

REPORT INFORMATION
  Report Type: 
  Country: None (occurrence: None)
  Receive Date: 20100802
  Receipt Date: 20100716
  Transmission Date: 20110219
  Serious: Yes (Hospitalization)
  Sender: FDA-Public Use
  Company Number: US-BAYER-200937772NA

PATIENT
  Age: 25 Year
  Sex: Female
  Weight: 104 kg

DRUGS (30)
  1. YASMIN [Suspect]
     Indication: CONTRACEPTION
     Dosage: TOTAL DAILY DOSE: 1 DF
     Route: 048
  2. YAZ [Suspect]
     Indication: CONTRACEPTION
     Route: 048
     Dates: start: 20060501, end: 20061101
  3. RESCUE INHALER [Concomitant]
     Dates: start: 20010101, end: 20030101
  4. ADVIL LIQUI-GELS [Concomitant]
  5. ALLERCLEAR [Concomitant]
     Indication: MULTIPLE ALLERGIES
  6. ANALPRAM [Concomitant]
     Indication: ANXIETY
  7. SIMVASTATIN [Concomitant]
     Indication: BLOOD CHOLESTEROL INCREASED
  8. ADIPEX [Concomitant]
     Indication: OBESITY
     Dates: start: 20060201, end: 20060501
  9. CYCLOBENZAPRINE [Concomitant]
     Indication: ANALGESIC THERAPY
     Dates: start: 20061114
  10. ACIPHEX [Concomitant]
  11. AMITRIPTYLINE HYDROCHLORIDE [Concomitant]
  12. THYROID TAB [Concomitant]
  13. AZITHROMYCIN [Concomitant]
  14. CEPHALEXIN [Concomitant]
  15. CLAVINEX [Concomitant]
  16. CLONAZEPAM [Concomitant]
  17. CYMBALTA [Concomitant]
  18. DIAZEPAM [Concomitant]
  19. ELESTAT [Concomitant]
  20. EPIPEN [Concomitant]
  21. HYDROCOD [Concomitant]
  22. LOVENOX [Concomitant]
  23. METRONIDAZOLE [Concomitant]
  24. MUPIROCIN [Concomitant]
  25. ROXICET [Concomitant]
  26. SINGULAIR [Concomitant]
  27. TOBRADEX [Concomitant]
  28. TOBRADEX [Concomitant]
  29. TRIAM [Concomitant]
  30. ZYRTEC [Concomitant]

REACTIONS (4)
  - ARTHRALGIA [None]
  - DEEP VEIN THROMBOSIS [None]
  - OEDEMA PERIPHERAL [None]
  - PULMONARY EMBOLISM [None]
